FAERS Safety Report 8220272-5 (Version None)
Quarter: 2012Q1

REPORT INFORMATION
  Report Type: 
  Country: None (occurrence: None)
  Receive Date: 20120316
  Receipt Date: 20120228
  Transmission Date: 20120608
  Serious: Yes (Other)
  Sender: FDA-Public Use
  Company Number: TRP-00655

PATIENT
  Age: 40 Year
  Sex: Female

DRUGS (7)
  1. OBAGI NU-DERM HEALTHY SKIN PROTECTION SPF 35 [Suspect]
     Indication: SKIN HYPERPIGMENTATION
     Dosage: APPLYING TO FACE, TWICE DAILY, TOPICAL
     Route: 061
     Dates: start: 20120215
  2. OBAGI NU-DERM CLEAR [Suspect]
     Indication: SKIN HYPERPIGMENTATION
     Dosage: APPLYING TO FACE, TWICE DAILY, TOPICAL
     Route: 061
     Dates: start: 20120215, end: 20120227
  3. OBAGI NU-DERM EXFODERM FORTE [Suspect]
     Indication: SKIN HYPERPIGMENTATION
     Dosage: APPLYING TO FACE, TWICE DAILY, TOPICAL
     Route: 061
     Dates: start: 20120215, end: 20120227
  4. OBAGI NU-DERM BLENDER [Suspect]
     Indication: SKIN HYPERPIGMENTATION
     Dosage: APPLYING EVERY OTHER DAY, TOPICAL
     Route: 061
     Dates: start: 20120215, end: 20120227
  5. OBAGI NU-DERM TONER [Suspect]
     Indication: SKIN HYPERPIGMENTATION
     Dosage: APPLYING TO FACE, TWICE DAILY, TOPICAL
     Route: 061
     Dates: start: 20120215, end: 20120227
  6. TRETINOIN [Suspect]
     Indication: SKIN HYPERPIGMENTATION
     Dosage: APPLYING EVERY OTHER DAY, TOPICAL
     Route: 061
     Dates: start: 20120215, end: 20120227
  7. OBAGI NU-DERM GENTLE CLEANSER [Suspect]
     Indication: SKIN HYPERPIGMENTATION
     Dosage: APPLYING TO FACE, TWICE DAILY, TOPICAL
     Route: 061
     Dates: start: 20120215, end: 20120227

REACTIONS (4)
  - URTICARIA [None]
  - WHEEZING [None]
  - ASTHMA [None]
  - DRUG HYPERSENSITIVITY [None]
